FAERS Safety Report 23921247 (Version 4)
Quarter: 2024Q3

REPORT INFORMATION
  Report Type: Spontaneous
  Country: CZ (occurrence: CZ)
  Receive Date: 20240530
  Receipt Date: 20240708
  Transmission Date: 20241017
  Serious: Yes (Other)
  Sender: MYLAN
  Company Number: CZ-TEVA-VS-3197230

PATIENT
  Age: 64 Year
  Sex: Male
  Weight: 95 kg

DRUGS (11)
  1. METFORMIN [Suspect]
     Active Substance: METFORMIN HYDROCHLORIDE
     Indication: Diabetes mellitus
     Dosage: UNK
     Route: 065
  2. REPAGLINIDE [Suspect]
     Active Substance: REPAGLINIDE
     Indication: Diabetes mellitus
     Dosage: 0.5 MILLIGRAM, QD
     Route: 065
     Dates: end: 202306
  3. REPAGLINIDE [Suspect]
     Active Substance: REPAGLINIDE
     Dosage: LATER GLIMEPIRIDE WAS REPLACED BY REPAGLINIDE
     Route: 065
     Dates: end: 202306
  4. METFORMIN HYDROCHLORIDE\VILDAGLIPTIN [Suspect]
     Active Substance: METFORMIN HYDROCHLORIDE\VILDAGLIPTIN
     Indication: Diabetes mellitus
     Dosage: UNK
     Route: 065
     Dates: start: 2014
  5. EMPAGLIFLOZIN [Suspect]
     Active Substance: EMPAGLIFLOZIN
     Indication: Diabetes mellitus
     Dosage: 9A FREE COMBINATION OF METFORMIN AND EMPAGLIFLOZIN WAS SUGGESTED
     Route: 065
  6. EMPAGLIFLOZIN [Suspect]
     Active Substance: EMPAGLIFLOZIN
     Indication: Type 2 diabetes mellitus
  7. GLIMEPIRIDE [Concomitant]
     Active Substance: GLIMEPIRIDE
     Indication: Diabetes mellitus
     Dosage: 1 MILLIGRAM
     Route: 065
  8. GLIMEPIRIDE [Concomitant]
     Active Substance: GLIMEPIRIDE
     Dosage: GLIMEPIRIDE WAS ADDED TO METFORMIN AND EMPAGLIFLOZIN
     Route: 065
  9. GLIMEPIRIDE [Concomitant]
     Active Substance: GLIMEPIRIDE
     Dosage: UNK (DOSE REDUCED)
     Route: 065
  10. VILDAGLIPTIN [Concomitant]
     Active Substance: VILDAGLIPTIN
     Indication: Diabetes mellitus
     Dosage: FROM 2014 VILDAGLIPTIN WAS ADDED TO THE TREATMENT IN A FIXED COMBINATION WITH METFORMIN
     Route: 065
     Dates: start: 2014
  11. SEMAGLUTIDE [Concomitant]
     Active Substance: SEMAGLUTIDE
     Indication: Diabetes mellitus
     Dosage: UNK
     Route: 065

REACTIONS (4)
  - Hypoglycaemia [Not Recovered/Not Resolved]
  - Drug ineffective [Recovering/Resolving]
  - Blood glucose fluctuation [Unknown]
  - Microalbuminuria [Unknown]
